FAERS Safety Report 9053575 (Version 1)
Quarter: 2013Q1

REPORT INFORMATION
  Report Type: Spontaneous
  Country: US (occurrence: US)
  Receive Date: 20130208
  Receipt Date: 20130208
  Transmission Date: 20140127
  Serious: No
  Sender: FDA-Public Use
  Company Number: US-TARO-2012P1052869

PATIENT
  Age: 92 Year
  Sex: Female
  Weight: 60.78 kg

DRUGS (2)
  1. NYSTATIN + TRIAMCINOLONE ACETONIDE CREAM USP [Suspect]
     Route: 061
     Dates: start: 201205, end: 20120805
  2. TRAMADOL [Concomitant]

REACTIONS (7)
  - Hyperhidrosis [Unknown]
  - Drug effect incomplete [Not Recovered/Not Resolved]
  - Rash [Recovering/Resolving]
  - Burning sensation [Recovered/Resolved]
  - Erythema [Recovering/Resolving]
  - Pain [Unknown]
  - Urticaria [Not Recovered/Not Resolved]
